FAERS Safety Report 8396403-3 (Version None)
Quarter: 2012Q2

REPORT INFORMATION
  Report Type: 
  Country: None (occurrence: None)
  Receive Date: 20120530
  Receipt Date: 20120521
  Transmission Date: 20120825
  Serious: Yes (Hospitalization, Other)
  Sender: FDA-Public Use
  Company Number: US-MERCK-1201USA02844

PATIENT
  Age: 57 Year
  Sex: Female

DRUGS (4)
  1. FOSAMAX [Suspect]
     Indication: OSTEOPOROSIS
     Route: 048
     Dates: start: 19960601, end: 20080301
  2. FOSAMAX [Suspect]
     Route: 048
     Dates: start: 20080331, end: 20110101
  3. FOSAMAX [Suspect]
     Indication: OSTEOPENIA
     Route: 048
     Dates: start: 19960601, end: 20080301
  4. FOSAMAX [Suspect]
     Route: 048
     Dates: start: 20080331, end: 20110101

REACTIONS (21)
  - BLOOD DISORDER [None]
  - HYPOTHYROIDISM [None]
  - LOW TURNOVER OSTEOPATHY [None]
  - FEMUR FRACTURE [None]
  - COCCYDYNIA [None]
  - LIPOMA OF BREAST [None]
  - HYPERTENSION [None]
  - GINGIVAL DISORDER [None]
  - DIVERTICULUM INTESTINAL [None]
  - SPINAL OSTEOARTHRITIS [None]
  - LACERATION [None]
  - CERVICAL POLYP [None]
  - TENOSYNOVITIS STENOSANS [None]
  - LIGAMENT SPRAIN [None]
  - PATELLOFEMORAL PAIN SYNDROME [None]
  - DENTAL CARIES [None]
  - MENISCUS LESION [None]
  - HAEMORRHOIDS [None]
  - SPINAL COMPRESSION FRACTURE [None]
  - FALL [None]
  - COLONIC POLYP [None]
